FAERS Safety Report 18873992 (Version 2)
Quarter: 2021Q2

REPORT INFORMATION
  Report Type: Spontaneous
  Country: US (occurrence: US)
  Receive Date: 20210210
  Receipt Date: 20210615
  Transmission Date: 20210717
  Serious: Yes (Other)
  Sender: FDA-Public Use
  Company Number: US-GILEAD-2021-0515549

PATIENT
  Sex: Male
  Weight: 81.65 kg

DRUGS (46)
  1. TRUVADA [Suspect]
     Active Substance: EMTRICITABINE\TENOFOVIR DISOPROXIL FUMARATE
     Dosage: UNK
     Route: 048
     Dates: start: 20100518, end: 201612
  2. DESCOVY [Concomitant]
     Active Substance: EMTRICITABINE\TENOFOVIR ALAFENAMIDE FUMARATE
  3. TRIUMEQ [Concomitant]
     Active Substance: ABACAVIR SULFATE\DOLUTEGRAVIR SODIUM\LAMIVUDINE
  4. ZIAGEN [Concomitant]
     Active Substance: ABACAVIR SULFATE
  5. ATORVASTATIN [Concomitant]
     Active Substance: ATORVASTATIN
  6. BECLOMETHASONE [BECLOMETASONE] [Concomitant]
     Active Substance: BECLOMETHASONE
  7. DICLOFENAC [Concomitant]
     Active Substance: DICLOFENAC
  8. MEGESTROL [Concomitant]
     Active Substance: MEGESTROL
  9. PRAVASTATIN. [Concomitant]
     Active Substance: PRAVASTATIN
  10. RIFABUTIN. [Concomitant]
     Active Substance: RIFABUTIN
  11. AMITRIPTYLINE [Concomitant]
     Active Substance: AMITRIPTYLINE
  12. AZITHROMYCIN ANHYDROUS. [Concomitant]
     Active Substance: AZITHROMYCIN ANHYDROUS
  13. ETHAMBUTOL [Concomitant]
     Active Substance: ETHAMBUTOL HYDROCHLORIDE
  14. GOLYTELY [Concomitant]
     Active Substance: POLYETHYLENE GLYCOL 3350\POTASSIUM CHLORIDE\SODIUM BICARBONATE\SODIUM CHLORIDE\SODIUM SULFATE
  15. GUAIFENESIN. [Concomitant]
     Active Substance: GUAIFENESIN
  16. IBUPROFEN. [Concomitant]
     Active Substance: IBUPROFEN
  17. ISONIAZID. [Concomitant]
     Active Substance: ISONIAZID
  18. ABACAVIR. [Concomitant]
     Active Substance: ABACAVIR
  19. DARUNAVIR [Concomitant]
     Active Substance: DARUNAVIR
  20. FINASTERIDE. [Concomitant]
     Active Substance: FINASTERIDE
  21. HYDROCODONE/ACETAMINOPHEN [Concomitant]
     Active Substance: ACETAMINOPHEN\HYDROCODONE
  22. KETOCONAZOLE. [Concomitant]
     Active Substance: KETOCONAZOLE
  23. NITROFURANTOIN. [Concomitant]
     Active Substance: NITROFURANTOIN
  24. SULFAMETHOXAZOLE [Concomitant]
     Active Substance: SULFAMETHOXAZOLE
  25. CYPROHEPTADINE. [Concomitant]
     Active Substance: CYPROHEPTADINE
  26. PREDNISONE. [Concomitant]
     Active Substance: PREDNISONE
  27. PREZISTA [Concomitant]
     Active Substance: DARUNAVIR ETHANOLATE
  28. REYATAZ [Concomitant]
     Active Substance: ATAZANAVIR SULFATE
  29. ATAZANAVIR. [Concomitant]
     Active Substance: ATAZANAVIR
  30. CLINDAMYCIN. [Concomitant]
     Active Substance: CLINDAMYCIN
  31. FLUCONAZOLE. [Concomitant]
     Active Substance: FLUCONAZOLE
  32. VIREAD [Suspect]
     Active Substance: TENOFOVIR DISOPROXIL FUMARATE
     Indication: HIV INFECTION
     Dosage: UNK
     Route: 048
     Dates: start: 2001
  33. ASPIRIN [ACETYLSALICYLIC ACID] [Concomitant]
     Active Substance: ASPIRIN
  34. GABAPENTIN. [Concomitant]
     Active Substance: GABAPENTIN
  35. LEVALBUTEROL HCL [Concomitant]
     Active Substance: LEVALBUTEROL HYDROCHLORIDE
  36. PYRAZINAMIDE. [Concomitant]
     Active Substance: PYRAZINAMIDE
  37. TAMSULOSIN [Concomitant]
     Active Substance: TAMSULOSIN
  38. TRUVADA [Suspect]
     Active Substance: EMTRICITABINE\TENOFOVIR DISOPROXIL FUMARATE
     Indication: HIV INFECTION
     Dosage: UNK
     Route: 048
     Dates: start: 2001
  39. NORVIR [Concomitant]
     Active Substance: RITONAVIR
  40. ACYCLOVIR [ACICLOVIR] [Concomitant]
     Active Substance: ACYCLOVIR
  41. DOXAZOSIN [Concomitant]
     Active Substance: DOXAZOSIN MESYLATE
  42. FLUOCINONIDE. [Concomitant]
     Active Substance: FLUOCINONIDE
  43. HYDROCORTISONE. [Concomitant]
     Active Substance: HYDROCORTISONE
  44. PYRIDOXINE [Concomitant]
     Active Substance: PYRIDOXINE
  45. SILDENAFIL. [Concomitant]
     Active Substance: SILDENAFIL
  46. RITONAVIR. [Concomitant]
     Active Substance: RITONAVIR

REACTIONS (7)
  - Emotional distress [Not Recovered/Not Resolved]
  - Anxiety [Not Recovered/Not Resolved]
  - Pain [Not Recovered/Not Resolved]
  - Osteoporosis [Not Recovered/Not Resolved]
  - Anhedonia [Not Recovered/Not Resolved]
  - Arthritis [Unknown]
  - Bone disorder [Not Recovered/Not Resolved]

NARRATIVE: CASE EVENT DATE: 2010
